FAERS Safety Report 18585520 (Version 1)
Quarter: 2020Q4

REPORT INFORMATION
  Report Type: Spontaneous
  Country: US (occurrence: US)
  Receive Date: 20201204
  Receipt Date: 20201204
  Transmission Date: 20210114
  Serious: No
  Sender: FDA-Public Use
  Company Number: None

PATIENT
  Sex: Female

DRUGS (1)
  1. OTEZLA [Suspect]
     Active Substance: APREMILAST
     Indication: PSORIATIC ARTHROPATHY
     Dosage: ?          OTHER FREQUENCY:BID ;OTHER ROUTE:PO?
     Route: 048
     Dates: start: 20200925

REACTIONS (3)
  - Diarrhoea [None]
  - Nausea [None]
  - Pain [None]
